FAERS Safety Report 4661737-2 (Version None)
Quarter: 2005Q2

REPORT INFORMATION
  Report Type: 
  Country: None (occurrence: None)
  Receive Date: 20050513
  Receipt Date: 20050502
  Transmission Date: 20051028
  Serious: Yes (Other)
  Sender: FDA-Public Use
  Company Number: BR-ROCHE-403862

PATIENT
  Age: 21 Year
  Sex: Female
  Weight: 92.4 kg

DRUGS (3)
  1. XENICAL [Suspect]
     Route: 048
     Dates: start: 20041115
  2. PLENTY [Concomitant]
  3. SUPRADYN [Concomitant]

REACTIONS (3)
  - HAEMATOCHEZIA [None]
  - MALAISE [None]
  - NAUSEA [None]
